FAERS Safety Report 7401688-3 (Version None)
Quarter: 2011Q2

REPORT INFORMATION
  Report Type: 
  Country: None (occurrence: None)
  Receive Date: 20110408
  Receipt Date: 20110331
  Transmission Date: 20111010
  Serious: Yes (Other)
  Sender: FDA-Public Use
  Company Number: US-RB-024170-11

PATIENT
  Age: 50 Year
  Sex: Female

DRUGS (1)
  1. MUCINEX [Suspect]
     Dosage: PATIENT TAKES IT ATLEAST ONCE A DAY IF NOT TWICE AS NEEDED. NOT TAKEN AT SET INTERVALS.
     Route: 048

REACTIONS (2)
  - TINNITUS [None]
  - HYPERTENSION [None]
